FAERS Safety Report 8219432-9 (Version None)
Quarter: 2012Q1

REPORT INFORMATION
  Report Type: 
  Country: None (occurrence: None)
  Receive Date: 20120319
  Receipt Date: 20120314
  Transmission Date: 20120608
  Serious: Yes (Other)
  Sender: FDA-Public Use
  Company Number: RU-PFIZER INC-2012067015

PATIENT
  Age: 94 Year
  Sex: Male

DRUGS (2)
  1. INSPRA [Suspect]
     Indication: CARDIOVASCULAR INSUFFICIENCY
  2. INSPRA [Suspect]
     Indication: CARDIAC FAILURE CHRONIC
     Dosage: 25 MG, 1X/DAY
     Route: 048
     Dates: start: 20111201, end: 20120201

REACTIONS (3)
  - QUALITY OF LIFE DECREASED [None]
  - CARDIAC FAILURE CHRONIC [None]
  - DYSPNOEA [None]
